FAERS Safety Report 11177359 (Version 1)
Quarter: 2015Q2

REPORT INFORMATION
  Report Type: Spontaneous
  Country: US (occurrence: None)
  Receive Date: 20150515
  Receipt Date: 20150515
  Transmission Date: 20150821
  Serious: Yes (Other)
  Sender: FDA-Public Use
  Company Number: 2014004515

PATIENT
  Age: 55 Year
  Sex: Female

DRUGS (3)
  1. REMICADE [Concomitant]
     Active Substance: INFLIXIMAB
  2. CIMZIA [Suspect]
     Active Substance: CERTOLIZUMAB PEGOL
     Indication: CROHN^S DISEASE
     Dates: start: 20140425
  3. KENALOG (TRIAMCINOLONE ACETONIDE) INJECTION [Concomitant]

REACTIONS (8)
  - Viral infection [None]
  - Rash [None]
  - Injection site rash [None]
  - Feeling hot [None]
  - Herpes zoster [None]
  - Headache [None]
  - Skin exfoliation [None]
  - Pruritus [None]

NARRATIVE: CASE EVENT DATE: 201404
